FAERS Safety Report 7715838-2 (Version None)
Quarter: 2011Q3

REPORT INFORMATION
  Report Type: 
  Country: None (occurrence: None)
  Receive Date: 20110829
  Receipt Date: 20110829
  Transmission Date: 20111222
  Serious: Yes (Death, Life-Threatening, Hospitalization)
  Sender: FDA-Public Use
  Company Number: None

PATIENT
  Sex: Female
  Weight: 27 kg

DRUGS (5)
  1. ROPIVACAINE HYDROCHLORIDE [Suspect]
     Indication: ANAESTHESIA PROCEDURE
     Dosage: 5MG/ML X 30ML=150MG TOTAL
  2. TOPROL-XL [Concomitant]
     Route: 048
  3. CYMBALTA [Concomitant]
     Route: 048
  4. AZURETTE [Concomitant]
  5. DIGOXIN [Concomitant]
     Route: 048

REACTIONS (8)
  - CARDIAC DISORDER [None]
  - HYPOVENTILATION [None]
  - UNRESPONSIVE TO STIMULI [None]
  - PNEUMONIA ASPIRATION [None]
  - GRAND MAL CONVULSION [None]
  - SUPRAVENTRICULAR TACHYCARDIA [None]
  - TOXICITY TO VARIOUS AGENTS [None]
  - PNEUMOTHORAX [None]
